FAERS Safety Report 10272970 (Version 2)
Quarter: 2014Q3

REPORT INFORMATION
  Report Type: Spontaneous
  Country: ES (occurrence: None)
  Receive Date: 20140630
  Receipt Date: 20140731
  Transmission Date: 20150326
  Serious: Yes (Other)
  Sender: FDA-Public Use
  Company Number: FK201402463

PATIENT
  Age: 50 Year
  Sex: Female

DRUGS (4)
  1. CYCLOPHOSPHAMIDE (CYCLOPHOSPHAMIDE) [Concomitant]
     Active Substance: CYCLOPHOSPHAMIDE
  2. NINTEDANIB (BIBF 1120) (BIBF 1120) [Suspect]
     Active Substance: NINTEDANIB
     Indication: TUBULAR BREAST CARCINOMA
  3. ADRIAMYCIN (DOXORUBICIN) [Concomitant]
  4. PACLITAXEL (MANUFACTURER UNKNOWN) (PACLITAXEL) (PACLITAXEL) [Suspect]
     Active Substance: PACLITAXEL
     Indication: TUBULAR BREAST CARCINOMA

REACTIONS (4)
  - Alopecia [None]
  - Paronychia [None]
  - Peripheral sensory neuropathy [None]
  - Onycholysis [None]
